FAERS Safety Report 20764749 (Version 7)
Quarter: 2024Q1

REPORT INFORMATION
  Report Type: Report from Study
  Country: CH (occurrence: CH)
  Receive Date: 20220428
  Receipt Date: 20240123
  Transmission Date: 20240410
  Serious: Yes (Hospitalization, Other)
  Sender: FDA-Public Use
  Company Number: CH-TAKEDA-2022TUS027067

PATIENT
  Age: 49 Year
  Sex: Male
  Weight: 80 kg

DRUGS (17)
  1. LANADELUMAB [Suspect]
     Active Substance: LANADELUMAB
     Indication: Hereditary angioedema with C1 esterase inhibitor deficiency
     Dosage: 300 MILLIGRAM, Q2WEEKS
     Route: 058
     Dates: start: 20210413
  2. BERINERT [Concomitant]
     Active Substance: HUMAN C1-ESTERASE INHIBITOR
     Indication: Prophylaxis
     Dosage: 1600 INTERNATIONAL UNIT
     Route: 042
     Dates: start: 20210716
  3. LERCANIDIPINE HYDROCHLORIDE [Concomitant]
     Active Substance: LERCANIDIPINE HYDROCHLORIDE
     Indication: Hypertension
     Dosage: 10 MILLIGRAM
     Route: 048
     Dates: start: 201610
  4. TORSEMIDE [Concomitant]
     Active Substance: TORSEMIDE
     Indication: Hypertension
     Dosage: 10 MILLIGRAM
     Route: 048
     Dates: start: 201610
  5. BISOPROLOL [Concomitant]
     Active Substance: BISOPROLOL\BISOPROLOL FUMARATE
     Indication: Hypertension
     Dosage: 5 MILLIGRAM
     Route: 048
     Dates: start: 201610
  6. SODIUM CHONDROITIN SULFATE [Concomitant]
     Active Substance: SODIUM CHONDROITIN SULFATE
     Indication: Osteoporosis prophylaxis
     Dosage: 800 MILLIGRAM
     Route: 048
     Dates: start: 20210201
  7. TRANEXAMIC ACID [Concomitant]
     Active Substance: TRANEXAMIC ACID
     Indication: Anticoagulant therapy
     Dosage: 1000 MILLIGRAM
     Route: 042
     Dates: start: 20210716, end: 20210716
  8. CEFUROXIME [Concomitant]
     Active Substance: CEFUROXIME
     Indication: Infection
     Dosage: 1.5 GRAM
     Route: 042
     Dates: start: 20210716, end: 20210716
  9. EPHEDRINE [Concomitant]
     Active Substance: EPHEDRINE
     Indication: Hip arthroplasty
     Dosage: 10 MILLIGRAM
     Route: 042
     Dates: start: 20210716, end: 20210716
  10. FENTANYL [Concomitant]
     Active Substance: FENTANYL\FENTANYL CITRATE
     Indication: Hip arthroplasty
     Dosage: 250 MICROGRAM
     Route: 042
     Dates: start: 20210716, end: 20210716
  11. PROPOFOL [Concomitant]
     Active Substance: PROPOFOL
     Indication: Femoral neck fracture
     Dosage: 1113 MILLIGRAM
     Route: 042
     Dates: start: 20210716, end: 20210716
  12. NALOXONE HYDROCHLORIDE\OXYCODONE HYDROCHLORIDE [Concomitant]
     Active Substance: NALOXONE HYDROCHLORIDE\OXYCODONE HYDROCHLORIDE
     Indication: Hip arthroplasty
     Dosage: 2 DOSAGE FORM
     Route: 048
     Dates: start: 20210716, end: 20210717
  13. METAMIZOL [Concomitant]
     Active Substance: METAMIZOLE SODIUM
     Indication: Femoral neck fracture
     Dosage: 2 MILLILITER
     Route: 048
     Dates: start: 20210716, end: 20210719
  14. IBUPROFEN [Concomitant]
     Active Substance: IBUPROFEN
     Indication: Hip arthroplasty
     Dosage: 3 DOSAGE FORM
     Route: 048
     Dates: start: 20210716, end: 20210719
  15. IBUPROFEN [Concomitant]
     Active Substance: IBUPROFEN
     Dosage: 800 MILLIGRAM
     Route: 048
     Dates: start: 20230315, end: 20230325
  16. DALTEPARIN [Concomitant]
     Active Substance: DALTEPARIN
     Indication: Tenoplasty
     Dosage: 2500 INTERNATIONAL UNIT
     Route: 058
     Dates: start: 20230315, end: 20230329
  17. RIVAROXABAN [Concomitant]
     Active Substance: RIVAROXABAN
     Indication: Tenoplasty
     Dosage: 10 MILLIGRAM
     Route: 048
     Dates: start: 20230315, end: 20230329

REACTIONS (2)
  - Femoral neck fracture [Recovered/Resolved]
  - Fracture pain [Recovered/Resolved]

NARRATIVE: CASE EVENT DATE: 20210711
